FAERS Safety Report 15460464 (Version 1)
Quarter: 2018Q4

REPORT INFORMATION
  Report Type: Spontaneous
  Country: US (occurrence: US)
  Receive Date: 20181001
  Receipt Date: 20181001
  Transmission Date: 20190204
  Serious: Yes (Other)
  Sender: FDA-Public Use
  Company Number: None

PATIENT
  Age: 67 Year
  Sex: Female
  Weight: 51.75 kg

DRUGS (5)
  1. LAMOTRIGINE 25 MG [Concomitant]
     Active Substance: LAMOTRIGINE
  2. CLONAZEPAM. [Suspect]
     Active Substance: CLONAZEPAM
     Indication: ANXIETY
     Dosage: ?          QUANTITY:1 DF DOSAGE FORM;?
     Route: 048
  3. VITAMIN B12 [Concomitant]
     Active Substance: CYANOCOBALAMIN
  4. GABAPENTIN 300 MG [Concomitant]
     Active Substance: GABAPENTIN
  5. VITAMIN D-3 5000 IU [Concomitant]

REACTIONS (7)
  - Drug ineffective [None]
  - Poor quality sleep [None]
  - Nausea [None]
  - Therapeutic response changed [None]
  - Diarrhoea [None]
  - Initial insomnia [None]
  - Fatigue [None]

NARRATIVE: CASE EVENT DATE: 20180805
